FAERS Safety Report 8249518-4 (Version None)
Quarter: 2012Q1

REPORT INFORMATION
  Report Type: 
  Country: None (occurrence: None)
  Receive Date: 20120316
  Receipt Date: 20101223
  Transmission Date: 20120608
  Serious: Yes (Other)
  Sender: FDA-Public Use
  Company Number: PHHY2010US88144

PATIENT
  Age: 70 Year
  Sex: Female

DRUGS (7)
  1. MOLAX (DOMPERIDONE) [Concomitant]
  2. LISINOPRIL [Suspect]
  3. SYNTHROID [Concomitant]
  4. TEKTURNA [Suspect]
     Indication: HYPERTENSION
     Dosage: 300 MG, QD, ORAL
     Route: 048
  5. BOREA (MEGESTROL ACETATE) [Concomitant]
  6. DIOVAN [Suspect]
  7. AMLODIPINE [Concomitant]

REACTIONS (3)
  - PRURITUS [None]
  - LIP SWELLING [None]
  - ANGIOEDEMA [None]
